FAERS Safety Report 18688815 (Version 1)
Quarter: 2020Q4

REPORT INFORMATION
  Report Type: Report from Study
  Country: CO (occurrence: CO)
  Receive Date: 20201231
  Receipt Date: 20201231
  Transmission Date: 20210114
  Serious: Yes (Other)
  Sender: FDA-Public Use
  Company Number: NVSC2020CO343117

PATIENT
  Sex: Male
  Weight: 87 kg

DRUGS (1)
  1. LOSARTAN. [Suspect]
     Active Substance: LOSARTAN
     Indication: HYPERTENSION
     Dosage: 50 MG, QD, STARTED 10 YEARS AGO
     Route: 048

REACTIONS (6)
  - Intervertebral disc degeneration [Unknown]
  - Metastasis [Unknown]
  - Intervertebral disc protrusion [Unknown]
  - Metastatic malignant melanoma [Unknown]
  - BRAF gene mutation [Unknown]
  - Back pain [Recovered/Resolved]

NARRATIVE: CASE EVENT DATE: 2015
